FAERS Safety Report 7984283-7 (Version None)
Quarter: 2011Q4

REPORT INFORMATION
  Report Type: 
  Country: None (occurrence: None)
  Receive Date: 20111216
  Receipt Date: 20111206
  Transmission Date: 20120403
  Serious: Yes (Other)
  Sender: FDA-Public Use
  Company Number: DK-JNJFOC-20111203085

PATIENT
  Sex: Female

DRUGS (4)
  1. METHOTREXATE [Concomitant]
     Route: 065
     Dates: start: 20080408, end: 20080718
  2. REMICADE [Suspect]
     Indication: ANKYLOSING SPONDYLITIS
     Route: 042
     Dates: end: 20091207
  3. REMICADE [Suspect]
     Route: 042
     Dates: start: 20080408
  4. MABTHERA [Concomitant]
     Route: 065
     Dates: start: 20090929, end: 20110721

REACTIONS (1)
  - PARAESTHESIA [None]
